FAERS Safety Report 10852190 (Version 1)
Quarter: 2015Q1

REPORT INFORMATION
  Report Type: Spontaneous
  Country: US (occurrence: US)
  Receive Date: 20150222
  Receipt Date: 20150222
  Transmission Date: 20150721
  Serious: No
  Sender: FDA-Public Use
  Company Number: US-ALLERGAN-1422375US

PATIENT
  Sex: Female

DRUGS (1)
  1. BOTOX COSMETIC [Suspect]
     Active Substance: ONABOTULINUMTOXINA
     Indication: SKIN WRINKLING
     Dosage: 15 UNITS, SINGLE
     Route: 030
     Dates: start: 20141016, end: 20141016

REACTIONS (6)
  - Fatigue [Unknown]
  - Influenza like illness [Unknown]
  - Pruritus generalised [Unknown]
  - Headache [Unknown]
  - Sensation of foreign body [Unknown]
  - Throat tightness [Unknown]
